FAERS Safety Report 24737298 (Version 1)
Quarter: 2024Q4

REPORT INFORMATION
  Report Type: Spontaneous
  Country: US (occurrence: None)
  Receive Date: 20241213
  Receipt Date: 20241213
  Transmission Date: 20250115
  Serious: Yes (Hospitalization)
  Sender: Public
  Company Number: None

PATIENT
  Age: 33 Year
  Sex: Male
  Weight: 78 kg

DRUGS (1)
  1. HUMAN IMMUNOGLOBULIN G [Suspect]
     Active Substance: HUMAN IMMUNOGLOBULIN G
     Indication: Dermatomyositis
     Dates: start: 20240905, end: 20240907

REACTIONS (4)
  - Headache [None]
  - Nausea [None]
  - Vomiting [None]
  - Haemolytic anaemia [None]

NARRATIVE: CASE EVENT DATE: 20240907
